FAERS Safety Report 7422165 (Version 2)
Quarter: 2020Q3

REPORT INFORMATION
  Report Type: Report from Study
  Country: IN (occurrence: IN)
  Receive Date: 20100616
  Receipt Date: 20100806
  Transmission Date: 20201104
  Serious: Yes (Death, Hospitalization)
  Sender: FDA-Public Use
  Company Number: IN-WYE-H15625810

PATIENT
  Age: 29 Year
  Sex: Female
  Weight: 35 kg

DRUGS (2)
  1. BEVACIZUMAB. [Suspect]
     Active Substance: BEVACIZUMAB
     Indication: METASTATIC RENAL CELL CARCINOMA
     Route: 042
     Dates: start: 20090819
  2. INTERFERON ALFA NOS [Suspect]
     Active Substance: INTERFERON ALFA-2A OR INTERFERON ALFA-2B
     Indication: METASTATIC RENAL CELL CARCINOMA
     Dosage: 9 MUI 3 TIMES WEEKLY
     Route: 058
     Dates: start: 20090819

REACTIONS (3)
  - Intestinal perforation [Fatal]
  - Sepsis [Fatal]
  - Peritonitis [Fatal]

NARRATIVE: CASE EVENT DATE: 20100613
